FAERS Safety Report 14466472 (Version 1)
Quarter: 2018Q1

REPORT INFORMATION
  Report Type: Spontaneous
  Country: US (occurrence: US)
  Receive Date: 20180130
  Receipt Date: 20180130
  Transmission Date: 20180509
  Serious: No
  Sender: FDA-Public Use
  Company Number: None

PATIENT
  Sex: Female

DRUGS (1)
  1. ENBREL [Suspect]
     Active Substance: ETANERCEPT
     Indication: ILL-DEFINED DISORDER
     Route: 058
     Dates: start: 20180110

REACTIONS (7)
  - Lethargy [None]
  - Diarrhoea [None]
  - Myasthenia gravis [None]
  - Fatigue [None]
  - Crying [None]
  - Trichorrhexis [None]
  - Hair texture abnormal [None]
